FAERS Safety Report 8360936-6 (Version None)
Quarter: 2012Q2

REPORT INFORMATION
  Report Type: 
  Country: None (occurrence: None)
  Receive Date: 20120515
  Receipt Date: 20120503
  Transmission Date: 20120825
  Serious: Yes (Other)
  Sender: FDA-Public Use
  Company Number: DE-PFIZER INC-2012115442

PATIENT
  Age: 51 Year

DRUGS (10)
  1. UBRETID [Suspect]
     Dosage: UNK
     Route: 065
     Dates: start: 20120101
  2. LORAZEPAM [Suspect]
     Dosage: UNK
     Dates: start: 20120101
  3. PREGABALIN [Suspect]
     Dosage: UNK
     Dates: start: 20120101
  4. CITALOPRAM HYDROBROMIDE [Suspect]
     Dosage: UNK
     Dates: start: 20120101
  5. METAMIZOLE [Suspect]
     Dosage: UNK
     Dates: start: 20120101
  6. PANTOPRAZOLE [Suspect]
     Dosage: UNK
     Route: 065
     Dates: start: 20120101
  7. IBUPROFEN [Suspect]
     Dosage: UNK
     Dates: start: 20120101
  8. MIRTAZAPINE [Suspect]
     Dosage: UNK
     Dates: start: 20120101
  9. LISINOPRIL [Suspect]
     Dosage: UNK
     Dates: start: 20120101
  10. DULOXETIME HYDROCHLORIDE [Suspect]
     Dosage: UNK
     Dates: start: 20120101

REACTIONS (2)
  - SUICIDE ATTEMPT [None]
  - INTENTIONAL OVERDOSE [None]
